FAERS Safety Report 21514747 (Version 1)
Quarter: 2022Q4

REPORT INFORMATION
  Report Type: Spontaneous
  Country: US (occurrence: US)
  Receive Date: 20221027
  Receipt Date: 20221027
  Transmission Date: 20230113
  Serious: Yes (Life-Threatening, Hospitalization, Other)
  Sender: FDA-Public Use
  Company Number: US-PFIZER INC-PV202200083580

PATIENT
  Age: 42 Year
  Sex: Female

DRUGS (3)
  1. HYDROXYZINE PAMOATE [Suspect]
     Active Substance: HYDROXYZINE PAMOATE
     Dosage: 50 MG
  2. TIZANIDINE [Suspect]
     Active Substance: TIZANIDINE
     Dosage: 4 MG
  3. ESZOPICLONE [Suspect]
     Active Substance: ESZOPICLONE
     Dosage: 2 MG

REACTIONS (4)
  - Overdose [Unknown]
  - Unresponsive to stimuli [Recovered/Resolved]
  - Seizure [Recovered/Resolved]
  - Depressed level of consciousness [Recovered/Resolved]
